FAERS Safety Report 6823864-0 (Version None)
Quarter: 2010Q3

REPORT INFORMATION
  Report Type: 
  Country: None (occurrence: None)
  Receive Date: 20100708
  Receipt Date: 20060916
  Transmission Date: 20110219
  Serious: No
  Sender: FDA-Public Use
  Company Number: US-PFIZER INC-2006114056

PATIENT
  Sex: Female
  Weight: 102.06 kg

DRUGS (7)
  1. CHANTIX [Suspect]
     Indication: NICOTINE DEPENDENCE
     Dates: start: 20060912
  2. NORTRIPTYLINE [Concomitant]
  3. AMBIEN [Concomitant]
  4. PERCOCET [Concomitant]
  5. PEPCID AC [Concomitant]
  6. CLONAZEPAM [Concomitant]
  7. TOPAMAX [Concomitant]

REACTIONS (5)
  - DIARRHOEA [None]
  - ERUCTATION [None]
  - FEELING ABNORMAL [None]
  - FLATULENCE [None]
  - NAUSEA [None]
